FAERS Safety Report 14829431 (Version 1)
Quarter: 2018Q2

REPORT INFORMATION
  Report Type: Spontaneous
  Country: US (occurrence: US)
  Receive Date: 20180420
  Receipt Date: 20180420
  Transmission Date: 20180711
  Serious: No
  Sender: FDA-Public Use
  Company Number: None

PATIENT
  Age: 29 Month
  Sex: Female
  Weight: 14.9 kg

DRUGS (3)
  1. DAUNORUBICIN [Suspect]
     Active Substance: DAUNORUBICIN
     Dates: end: 20180329
  2. THIOGUANINE (6-TG) [Suspect]
     Active Substance: THIOGUANINE ANHYDROUS
     Dates: end: 20180330
  3. CYTARABINE. [Suspect]
     Active Substance: CYTARABINE
     Dates: end: 20180329

REACTIONS (6)
  - Vomiting [None]
  - Blood culture positive [None]
  - Escherichia test positive [None]
  - Pyrexia [None]
  - Lung consolidation [None]
  - Tachycardia [None]

NARRATIVE: CASE EVENT DATE: 20180407
